FAERS Safety Report 4486430-0 (Version None)
Quarter: 2004Q4

REPORT INFORMATION
  Report Type: 
  Country: None (occurrence: None)
  Receive Date: 20041026
  Receipt Date: 20041026
  Transmission Date: 20050328
  Serious: Yes (Hospitalization)
  Sender: FDA-Public Use
  Company Number: None

PATIENT
  Age: 20 Year
  Sex: Male

DRUGS (7)
  1. TACROLIMUS [Suspect]
     Indication: PROPHYLAXIS AGAINST TRANSPLANT REJECTION
     Dosage: 7 MG BID ORAL
     Route: 048
  2. PREDNISONE [Concomitant]
  3. VALGANCICLOVIR [Concomitant]
  4. BACTRIM [Concomitant]
  5. NYSTATIN [Concomitant]
  6. ASPIRIN [Concomitant]
  7. FAMOTIDINE [Concomitant]

REACTIONS (6)
  - CONVULSION [None]
  - DRUG TOXICITY [None]
  - ENCEPHALOPATHY [None]
  - FALL [None]
  - HEAD INJURY [None]
  - LOSS OF CONSCIOUSNESS [None]
